FAERS Safety Report 20446538 (Version 48)
Quarter: 2023Q1

REPORT INFORMATION
  Report Type: Report from Study
  Country: US (occurrence: None)
  Receive Date: 20220208
  Receipt Date: 20230303
  Transmission Date: 20230418
  Serious: Yes (Death, Hospitalization)
  Sender: FDA-Public Use
  Company Number: US-Eisai Medical Research-EC-2022-108195

PATIENT
  Age: 80 Year
  Sex: Male
  Weight: 97.2 kg

DRUGS (24)
  1. LENVATINIB [Suspect]
     Active Substance: LENVATINIB
     Indication: Small cell lung cancer extensive stage
     Route: 048
     Dates: start: 20220124, end: 20220127
  2. PEMBROLIZUMAB [Suspect]
     Active Substance: PEMBROLIZUMAB
     Indication: Small cell lung cancer extensive stage
     Route: 041
     Dates: start: 20220124, end: 20220124
  3. CARBOPLATIN [Suspect]
     Active Substance: CARBOPLATIN
     Indication: Small cell lung cancer extensive stage
     Dosage: AREA UNDER THE CURVE (AUC) 5 MG/ML/MIN
     Route: 041
     Dates: start: 20220124, end: 20220124
  4. ETOPOSIDE [Suspect]
     Active Substance: ETOPOSIDE
     Indication: Small cell lung cancer extensive stage
     Dosage: ON DAY1, D2 , D3
     Route: 041
     Dates: start: 20220124, end: 20220126
  5. ASPIRIN [Concomitant]
     Active Substance: ASPIRIN
     Dates: start: 20141024
  6. NAPROXEN [Concomitant]
     Active Substance: NAPROXEN
     Dates: start: 20141024
  7. ONDANSETRON [Concomitant]
     Active Substance: ONDANSETRON
     Dates: start: 20220124, end: 20220131
  8. PRIMIDONE [Concomitant]
     Active Substance: PRIMIDONE
     Dates: start: 20211209
  9. SIMVASTATIN [Concomitant]
     Active Substance: SIMVASTATIN
     Dates: start: 20211209
  10. METOPROLOL TARTRATE [Concomitant]
     Active Substance: METOPROLOL TARTRATE
     Dates: start: 20211209
  11. NITROGLYCERIN [Concomitant]
     Active Substance: NITROGLYCERIN
     Dates: start: 20211209
  12. CLOPIDOGREL [Concomitant]
     Active Substance: CLOPIDOGREL BISULFATE
     Dates: start: 20211209
  13. NALOXONE [NALOXONE HYDROCHLORIDE] [Concomitant]
     Dates: start: 20220117
  14. OXYCODONE [Concomitant]
     Active Substance: OXYCODONE
     Dates: start: 20220117
  15. ZOLEDRONIC ACID [Concomitant]
     Active Substance: ZOLEDRONIC ACID
     Dates: start: 20220120, end: 20220120
  16. ALLOPURINOL [Concomitant]
     Active Substance: ALLOPURINOL
     Dates: start: 20220120
  17. DEXAMETHASONE [Concomitant]
     Active Substance: DEXAMETHASONE
     Dates: start: 20220124, end: 20220124
  18. PROCHLORPERAZINE [Concomitant]
     Active Substance: PROCHLORPERAZINE
     Dates: start: 20220124, end: 20220131
  19. EMEND [Concomitant]
     Active Substance: APREPITANT
     Dates: start: 20220124, end: 20220124
  20. FUROSEMIDE [Concomitant]
     Active Substance: FUROSEMIDE
     Dates: start: 20220125, end: 20220125
  21. GABAPENTIN [Concomitant]
     Active Substance: GABAPENTIN
     Dates: start: 20220125
  22. PEGFILGRASTIM [Concomitant]
     Active Substance: PEGFILGRASTIM
     Dates: start: 20220126, end: 20220126
  23. OLANZAPINE [Concomitant]
     Active Substance: OLANZAPINE
     Dates: start: 20220129, end: 20220131
  24. IMODIUM [Concomitant]
     Active Substance: LOPERAMIDE HYDROCHLORIDE
     Dates: start: 20220129, end: 20220131

REACTIONS (3)
  - Intestinal ischaemia [Fatal]
  - Neutropenia [Recovered/Resolved]
  - Acute kidney injury [Recovered/Resolved]

NARRATIVE: CASE EVENT DATE: 20220131
